FAERS Safety Report 8020935-0 (Version None)
Quarter: 2011Q4

REPORT INFORMATION
  Report Type: 
  Country: None (occurrence: None)
  Receive Date: 20111229
  Receipt Date: 20111229
  Transmission Date: 20120403
  Serious: No
  Sender: FDA-Public Use
  Company Number: None

PATIENT
  Sex: Female
  Weight: 58.9676 kg

DRUGS (1)
  1. ESTRADIOL [Suspect]
     Dosage: PATCH 0.1 MG ONCE WEEKLY
     Dates: start: 20100722, end: 20110801

REACTIONS (2)
  - PRODUCT ADHESION ISSUE [None]
  - THERAPEUTIC PRODUCT INEFFECTIVE [None]
